FAERS Safety Report 7382868-2 (Version None)
Quarter: 2011Q1

REPORT INFORMATION
  Report Type: 
  Country: None (occurrence: None)
  Receive Date: 20110330
  Receipt Date: 20101021
  Transmission Date: 20110831
  Serious: Yes (Hospitalization, Other)
  Sender: FDA-Public Use
  Company Number: US-BAYER-200935882NA

PATIENT
  Sex: Female
  Weight: 77.273 kg

DRUGS (8)
  1. YASMIN [Suspect]
     Indication: PREMENSTRUAL SYNDROME
  2. MINOCYCLINE [Concomitant]
     Dates: start: 20040101, end: 20070615
  3. LUVOX [Concomitant]
     Dosage: DAILY DOSE 100 MG
  4. CELEXA [Concomitant]
     Dosage: DAILY DOSE 20 MG
  5. ATIVAN [Concomitant]
     Dosage: DAILY DOSE .5 MG
  6. YASMIN [Suspect]
     Indication: CONTRACEPTION
     Dosage: UNK UNK, UNK
     Route: 048
     Dates: start: 20060601, end: 20070701
  7. IBUPROFEN [Concomitant]
     Indication: HEADACHE
  8. LEVOTHYROXINE SODIUM [Concomitant]
     Indication: HYPOTHYROIDISM
     Dates: start: 20070101

REACTIONS (3)
  - CHOLECYSTITIS ACUTE [None]
  - BILIARY COLIC [None]
  - CHOLELITHIASIS [None]
